FAERS Safety Report 18019916 (Version 1)
Quarter: 2020Q3

REPORT INFORMATION
  Report Type: Spontaneous
  Country: US (occurrence: US)
  Receive Date: 20200714
  Receipt Date: 20200714
  Transmission Date: 20201103
  Serious: No
  Sender: FDA-Public Use
  Company Number: US-PFIZER INC-2020246750

PATIENT
  Age: 73 Year
  Sex: Female
  Weight: 68.04 kg

DRUGS (1)
  1. CELEBREX [Suspect]
     Active Substance: CELECOXIB
     Indication: ARTHRITIS
     Dosage: 200 MG, DAILY(TAKING IT EVERY DAY)

REACTIONS (6)
  - Product use in unapproved indication [Unknown]
  - Anger [Unknown]
  - Gastric disorder [Unknown]
  - Off label use [Unknown]
  - Illness [Unknown]
  - Headache [Unknown]
